FAERS Safety Report 6208355-2 (Version None)
Quarter: 2009Q2

REPORT INFORMATION
  Report Type: 
  Country: None (occurrence: None)
  Receive Date: 20090522
  Receipt Date: 20090511
  Transmission Date: 20091009
  Serious: No
  Sender: FDA-Public Use
  Company Number: 006438

PATIENT
  Age: 5 Year

DRUGS (6)
  1. BUSULFEX [Suspect]
     Indication: STEM CELL TRANSPLANT
     Dosage: 16 MG/KG, QD
  2. CAMPATH [Concomitant]
  3. CYCLOPHOSPHAMIDE [Concomitant]
  4. CYCLOSPORINE [Concomitant]
  5. SULFAMETHOXAZOLE AND TRIMETHOPRIM [Concomitant]
  6. ITRACONAZOLE [Concomitant]

REACTIONS (5)
  - ACUTE GRAFT VERSUS HOST DISEASE IN SKIN [None]
  - CANDIDA PNEUMONIA [None]
  - DRUG INEFFECTIVE [None]
  - ENGRAFT FAILURE [None]
  - PROCEDURAL COMPLICATION [None]
